FAERS Safety Report 7828123-5 (Version None)
Quarter: 2011Q4

REPORT INFORMATION
  Report Type: 
  Country: None (occurrence: None)
  Receive Date: 20111020
  Receipt Date: 20111005
  Transmission Date: 20120403
  Serious: Yes (Other)
  Sender: FDA-Public Use
  Company Number: US-JNJFOC-20111004302

PATIENT
  Sex: Male

DRUGS (8)
  1. VALPROIC ACID [Concomitant]
     Route: 065
  2. RISPERIDONE [Suspect]
     Route: 065
     Dates: start: 20030801
  3. RISPERIDONE [Suspect]
     Route: 065
     Dates: start: 20060601
  4. RISPERIDONE [Suspect]
     Route: 065
     Dates: start: 20030201, end: 20030801
  5. RISPERIDONE [Suspect]
     Route: 065
     Dates: start: 20051001, end: 20060101
  6. CLOMIPRAMINE HCL [Suspect]
     Indication: OBSESSIVE-COMPULSIVE DISORDER
     Route: 065
  7. QUETIAPINE [Suspect]
     Indication: OBSESSIVE-COMPULSIVE DISORDER
     Route: 065
  8. RISPERIDONE [Suspect]
     Indication: OBSESSIVE-COMPULSIVE DISORDER
     Route: 065
     Dates: end: 20030201

REACTIONS (3)
  - EXTRAPYRAMIDAL DISORDER [None]
  - DISTURBANCE IN SOCIAL BEHAVIOUR [None]
  - HYPERPROLACTINAEMIA [None]
